FAERS Safety Report 7274212-6 (Version None)
Quarter: 2011Q1

REPORT INFORMATION
  Report Type: 
  Country: None (occurrence: None)
  Receive Date: 20110204
  Receipt Date: 20110124
  Transmission Date: 20110831
  Serious: No
  Sender: FDA-Public Use
  Company Number: US-BIOGENIDEC-2011BI003601

PATIENT
  Sex: Female

DRUGS (3)
  1. AVONEX [Concomitant]
     Indication: MULTIPLE SCLEROSIS
     Route: 030
  2. TYSABRI [Suspect]
     Indication: MULTIPLE SCLEROSIS
     Route: 042
     Dates: start: 20100330
  3. TYSABRI [Suspect]
     Route: 042
     Dates: start: 20080417, end: 20090820

REACTIONS (5)
  - ASTHMA [None]
  - GASTROINTESTINAL DISORDER [None]
  - URINARY INCONTINENCE [None]
  - HYPOAESTHESIA [None]
  - PYREXIA [None]
